FAERS Safety Report 11403121 (Version 3)
Quarter: 2015Q3

REPORT INFORMATION
  Report Type: Spontaneous
  Country: CN (occurrence: CN)
  Receive Date: 20150821
  Receipt Date: 20150925
  Transmission Date: 20151125
  Serious: No
  Sender: FDA-Public Use
  Company Number: CN-BAYER-2015-398828

PATIENT
  Age: 79 Year
  Sex: Female

DRUGS (3)
  1. GLUCOBAY [Suspect]
     Active Substance: ACARBOSE
     Indication: BLOOD GLUCOSE ABNORMAL
     Dosage: 1 DF, EVERY AFTERNOON
  2. GLUCOBAY [Suspect]
     Active Substance: ACARBOSE
     Indication: BLOOD GLUCOSE ABNORMAL
     Dosage: 1 DF, OM
  3. GLUCOBAY [Suspect]
     Active Substance: ACARBOSE
     Indication: BLOOD GLUCOSE ABNORMAL
     Dosage: 1 DF, QON

REACTIONS (5)
  - Abnormal faeces [None]
  - Blood glucose increased [None]
  - Blood glucose abnormal [None]
  - Blood glucose fluctuation [None]
  - Weight decreased [None]

NARRATIVE: CASE EVENT DATE: 20150812
